FAERS Safety Report 20196257 (Version 2)
Quarter: 2021Q4

REPORT INFORMATION
  Report Type: Spontaneous
  Country: US (occurrence: US)
  Receive Date: 20211216
  Receipt Date: 20211231
  Transmission Date: 20220303
  Serious: Yes (Hospitalization)
  Sender: FDA-Public Use
  Company Number: US-TEVA-2021-US-1986939

PATIENT
  Age: 39 Year
  Sex: Female

DRUGS (4)
  1. PROGESTERONE [Suspect]
     Active Substance: PROGESTERONE
     Indication: Prophylaxis
     Route: 030
  2. TENOFOVIR [Suspect]
     Active Substance: TENOFOVIR
     Indication: Chronic hepatitis B
     Route: 065
  3. URSODIOL [Suspect]
     Active Substance: URSODIOL
     Indication: Chronic hepatitis B
     Route: 065
  4. DIPHENHYDRAMINE [Suspect]
     Active Substance: DIPHENHYDRAMINE
     Indication: Pruritus
     Route: 048

REACTIONS (4)
  - Cholestasis [Recovering/Resolving]
  - Cholestasis of pregnancy [Recovering/Resolving]
  - Pruritus [Recovered/Resolved]
  - Maternal exposure during pregnancy [Unknown]
